FAERS Safety Report 12385096 (Version 3)
Quarter: 2016Q2

REPORT INFORMATION
  Report Type: Spontaneous
  Country: JP (occurrence: JP)
  Receive Date: 20160519
  Receipt Date: 20160629
  Transmission Date: 20160815
  Serious: Yes (Other)
  Sender: FDA-Public Use
  Company Number: JP-009507513-1605JPN007258

PATIENT

DRUGS (3)
  1. SOFOSBUVIR [Concomitant]
     Active Substance: SOFOSBUVIR
     Indication: LIVER DISORDER
     Dosage: DAILY DOSE UNKNOWN
     Route: 048
  2. MK-0000 [Suspect]
     Active Substance: INVESTIGATIONAL PRODUCT
     Dosage: UNK
  3. COPEGUS [Suspect]
     Active Substance: RIBAVIRIN
     Indication: LIVER DISORDER
     Dosage: DAILY DOSE UNKNOWN
     Route: 048

REACTIONS (4)
  - Malaise [Unknown]
  - Cerebral haemorrhage [Unknown]
  - Blood bilirubin increased [Unknown]
  - Haemoglobin decreased [Unknown]
